FAERS Safety Report 7039319-7 (Version None)
Quarter: 2010Q4

REPORT INFORMATION
  Report Type: 
  Country: None (occurrence: None)
  Receive Date: 20101012
  Receipt Date: 20100930
  Transmission Date: 20110411
  Serious: Yes (Hospitalization)
  Sender: FDA-Public Use
  Company Number: DE-SANOFI-AVENTIS-2010SA054615

PATIENT
  Age: 38 Year
  Sex: Male
  Weight: 88 kg

DRUGS (4)
  1. MULTAQ [Suspect]
     Route: 048
     Dates: start: 20100707, end: 20100912
  2. METOPROLOL SUCCINATE [Concomitant]
     Indication: ATRIAL FIBRILLATION
     Dosage: DOSAGE: 1-0-1/2
     Route: 048
  3. METOPROLOL [Concomitant]
     Indication: PRODUCT USED FOR UNKNOWN INDICATION
     Dosage: DOSAGE: 1/2-0-1/2
     Route: 048
     Dates: start: 20100901
  4. ACETYLSALICYLIC ACID SRT [Concomitant]
     Indication: PRODUCT USED FOR UNKNOWN INDICATION
     Route: 048
     Dates: start: 20100501

REACTIONS (7)
  - ATRIAL FIBRILLATION [None]
  - ATRIAL FLUTTER [None]
  - DISCOMFORT [None]
  - NERVOUSNESS [None]
  - PALPITATIONS [None]
  - SINUS ARREST [None]
  - TACHYARRHYTHMIA [None]
